FAERS Safety Report 4376708-3 (Version None)
Quarter: 2004Q2

REPORT INFORMATION
  Report Type: 
  Country: None (occurrence: None)
  Receive Date: 20040608
  Receipt Date: 20040526
  Transmission Date: 20050107
  Serious: Yes (Death, Other)
  Sender: FDA-Public Use
  Company Number: 2004035410

PATIENT
  Age: 59 Year
  Sex: Male

DRUGS (7)
  1. ACCUPRIL [Suspect]
     Indication: ILL-DEFINED DISORDER
     Dosage: ORAL
     Route: 048
  2. GLIPIZIDE [Suspect]
     Indication: ILL-DEFINED DISORDER
     Dosage: ORAL
     Route: 048
  3. CELEBREX [Suspect]
     Indication: ILL-DEFINED DISORDER
     Dosage: ORAL
     Route: 048
  4. CODEINE PHOSPHATE AND ACETAMINOPHEN [Suspect]
     Indication: ILL-DEFINED DISORDER
     Dosage: ORAL
     Route: 048
  5. ZOLPIDEM TARTRATE [Suspect]
     Indication: ILL-DEFINED DISORDER
     Dosage: ORAL
     Route: 048
  6. PANTOPRAZOLE (PANTOPRAZOLE) [Suspect]
     Indication: ILL-DEFINED DISORDER
     Dosage: ORAL
     Route: 048
  7. THIAMINE MONONITRATE [Concomitant]

REACTIONS (7)
  - ATHEROSCLEROSIS [None]
  - COMPLETED SUICIDE [None]
  - EMPHYSEMA [None]
  - GLOMERULONEPHRITIS ACUTE [None]
  - HEPATIC CONGESTION [None]
  - PULMONARY CONGESTION [None]
  - SELF-MEDICATION [None]
